FAERS Safety Report 5024658-1 (Version None)
Quarter: 2006Q2

REPORT INFORMATION
  Report Type: 
  Country: None (occurrence: None)
  Receive Date: 20060613
  Receipt Date: 20060505
  Transmission Date: 20061013
  Serious: Yes (Other)
  Sender: FDA-Public Use
  Company Number: CH-ROCHE-447077

PATIENT
  Age: 20 Year
  Sex: Female
  Weight: 51 kg

DRUGS (1)
  1. ROACCUTAN [Suspect]
     Indication: ACNE
     Route: 048
     Dates: start: 20051001, end: 20060320

REACTIONS (3)
  - ABORTION INDUCED [None]
  - DRUG EXPOSURE DURING PREGNANCY [None]
  - PREGNANCY [None]
